FAERS Safety Report 21687814 (Version 1)
Quarter: 2022Q4

REPORT INFORMATION
  Report Type: Spontaneous
  Country: US (occurrence: US)
  Receive Date: 20221206
  Receipt Date: 20221206
  Transmission Date: 20230113
  Serious: No
  Sender: FDA-Public Use
  Company Number: US-NEBO-PC009420

PATIENT
  Age: 68 Year
  Sex: Female
  Weight: 104 kg

DRUGS (1)
  1. MONOFERRIC [Suspect]
     Active Substance: FERRIC DERISOMALTOSE
     Indication: Iron deficiency anaemia
     Route: 050
     Dates: start: 20221117, end: 20221117

REACTIONS (2)
  - Product administration error [Recovered/Resolved]
  - Extravasation [Unknown]

NARRATIVE: CASE EVENT DATE: 20221118
